FAERS Safety Report 23603503 (Version 1)
Quarter: 2024Q1

REPORT INFORMATION
  Report Type: Spontaneous
  Country: HR (occurrence: HR)
  Receive Date: 20240307
  Receipt Date: 20240307
  Transmission Date: 20240410
  Serious: Yes (Death, Hospitalization, Other)
  Sender: FDA-Public Use
  Company Number: HR-BoehringerIngelheim-2024-BI-012546

PATIENT

DRUGS (2)
  1. EMPAGLIFLOZIN [Suspect]
     Active Substance: EMPAGLIFLOZIN
     Indication: Cardiac failure
  2. DAPAGLIFLOZIN [Suspect]
     Active Substance: DAPAGLIFLOZIN
     Indication: Cardiac failure

REACTIONS (7)
  - Cardiac failure [Fatal]
  - Peripheral venous disease [Fatal]
  - Myocardial infarction [Fatal]
  - Urinary tract infection [Unknown]
  - Cardiac failure [Unknown]
  - Drug intolerance [Unknown]
  - Chronic kidney disease [Unknown]
